FAERS Safety Report 14599078 (Version 1)
Quarter: 2018Q1

REPORT INFORMATION
  Report Type: Spontaneous
  Country: US (occurrence: US)
  Receive Date: 20180303
  Receipt Date: 20180303
  Transmission Date: 20180509
  Serious: Yes (Other)
  Sender: FDA-Public Use
  Company Number: None

PATIENT
  Age: 46 Year
  Sex: Female
  Weight: 103.5 kg

DRUGS (6)
  1. IBUPROFEN. [Concomitant]
     Active Substance: IBUPROFEN
  2. BENADRYL [Concomitant]
     Active Substance: DIPHENHYDRAMINE HYDROCHLORIDE
  3. ABILIFY [Concomitant]
     Active Substance: ARIPIPRAZOLE
  4. WELLBUTRIN [Concomitant]
     Active Substance: BUPROPION HYDROCHLORIDE
  5. RETAIN A CREAM [Concomitant]
  6. HEMORRHOIDAL COOLING GEL [Suspect]
     Active Substance: PHENYLEPHRINE HYDROCHLORIDE\WITCH HAZEL
     Indication: HAEMORRHOIDS
     Dosage: ?          OTHER STRENGTH:OUNCES;QUANTITY:1 APPLICATION;?
     Route: 061
     Dates: start: 20180223, end: 20180224

REACTIONS (5)
  - Anorectal discomfort [None]
  - Anal pruritus [None]
  - Erythema [None]
  - Blister [None]
  - Proctalgia [None]

NARRATIVE: CASE EVENT DATE: 20180223
